FAERS Safety Report 17160654 (Version 1)
Quarter: 2019Q4

REPORT INFORMATION
  Report Type: Spontaneous
  Country: US (occurrence: US)
  Receive Date: 20191216
  Receipt Date: 20191216
  Transmission Date: 20200122
  Serious: Yes (Hospitalization, Other)
  Sender: FDA-Public Use
  Company Number: US-NAPPMUNDI-USA-2019-0149354

PATIENT
  Sex: Female

DRUGS (4)
  1. OXYCODONE [Suspect]
     Active Substance: OXYCODONE
     Indication: PAIN
     Dosage: 10 MG, UNK
     Route: 048
  2. REGLAN [Suspect]
     Active Substance: METOCLOPRAMIDE HYDROCHLORIDE
     Indication: PRODUCT USED FOR UNKNOWN INDICATION
     Route: 048
  3. OXYCONTIN [Suspect]
     Active Substance: OXYCODONE HYDROCHLORIDE
     Indication: PAIN
     Dosage: 40 MG, BID
     Route: 048
  4. OPANA [Suspect]
     Active Substance: OXYMORPHONE HYDROCHLORIDE
     Indication: PAIN
     Route: 048

REACTIONS (23)
  - Eye operation [Unknown]
  - Visual impairment [Unknown]
  - Memory impairment [Not Recovered/Not Resolved]
  - Spinal operation [Unknown]
  - Parkinson^s disease [Not Recovered/Not Resolved]
  - Peritonitis [Unknown]
  - Screaming [Unknown]
  - Gastrointestinal disorder [Not Recovered/Not Resolved]
  - Pyrexia [Unknown]
  - Limb discomfort [Not Recovered/Not Resolved]
  - Surgery [Unknown]
  - Peripheral nerve operation [Unknown]
  - Hospitalisation [Unknown]
  - Colon operation [Unknown]
  - Blood glucose abnormal [Unknown]
  - Cardiac disorder [Unknown]
  - Burning sensation [Unknown]
  - Pain [Not Recovered/Not Resolved]
  - Internal haemorrhage [Unknown]
  - Diabetes mellitus [Not Recovered/Not Resolved]
  - Fall [Not Recovered/Not Resolved]
  - Cerebral disorder [Not Recovered/Not Resolved]
  - Vomiting [Unknown]

NARRATIVE: CASE EVENT DATE: 2002
